FAERS Safety Report 9356577 (Version 1)
Quarter: 2013Q2

REPORT INFORMATION
  Report Type: Report from Study
  Country: AR (occurrence: AR)
  Receive Date: 20130619
  Receipt Date: 20130619
  Transmission Date: 20140414
  Serious: Yes (Other)
  Sender: FDA-Public Use
  Company Number: PHHO2013AR007220

PATIENT
  Age: 18 Year
  Sex: Male
  Weight: 60 kg

DRUGS (4)
  1. NO TREATMENT RECEIVED [Suspect]
     Indication: RENAL TRANSPLANT
     Dosage: NO TREATMENT
  2. TACROLIMUS [Suspect]
     Indication: RENAL TRANSPLANT
     Dosage: 12 MG, QD
     Route: 048
     Dates: start: 20121211
  3. CELLCEPT [Concomitant]
     Indication: IMMUNOSUPPRESSION
     Dosage: 1 G, QD
     Route: 048
     Dates: start: 20121211
  4. DELTISONA [Concomitant]
     Indication: IMMUNOSUPPRESSION
     Dosage: 10 MG, QD
     Route: 048
     Dates: start: 20121211

REACTIONS (2)
  - Renal impairment [Recovering/Resolving]
  - Thrombotic microangiopathy [Not Recovered/Not Resolved]
